FAERS Safety Report 10277674 (Version 1)
Quarter: 2014Q3

REPORT INFORMATION
  Report Type: Spontaneous
  Country: US (occurrence: US)
  Receive Date: 20140704
  Receipt Date: 20140704
  Transmission Date: 20150326
  Serious: No
  Sender: FDA-Public Use
  Company Number: US-009507513-1407USA001479

PATIENT
  Sex: Male

DRUGS (1)
  1. DULERA [Suspect]
     Active Substance: FORMOTEROL FUMARATE DIHYDRATE\MOMETASONE FUROATE
     Dosage: 2 DF, BID (TWO PUFFS TWICE DAILY)
     Route: 055
     Dates: start: 20140617

REACTIONS (3)
  - Product quality issue [Unknown]
  - No adverse event [Unknown]
  - Underdose [Unknown]

NARRATIVE: CASE EVENT DATE: 2014
